FAERS Safety Report 5155574-2 (Version None)
Quarter: 2006Q4

REPORT INFORMATION
  Report Type: 
  Country: None (occurrence: None)
  Receive Date: 20061113
  Receipt Date: 20061103
  Transmission Date: 20070319
  Serious: Yes (Hospitalization)
  Sender: FDA-Public Use
  Company Number: 2006-02211

PATIENT
  Age: 46 Year
  Sex: Male
  Weight: 66.7 kg

DRUGS (3)
  1. VELCADE [Suspect]
     Indication: COLORECTAL CANCER
     Dosage: 10.00 MG, UNK, INTRAVENOUS
     Route: 042
     Dates: start: 20060713, end: 20060713
  2. OXALIPLATIN [Suspect]
     Indication: COLORECTAL CANCER
     Dosage: 85.00 MG, UNK, UNK
     Dates: start: 20060713
  3. NEULASTA [Concomitant]

REACTIONS (32)
  - ASTHENIA [None]
  - AUTONOMIC NERVOUS SYSTEM IMBALANCE [None]
  - CARPAL TUNNEL SYNDROME [None]
  - COORDINATION ABNORMAL [None]
  - CSF IMMUNOGLOBULIN DECREASED [None]
  - CSF PROTEIN INCREASED [None]
  - DEPRESSION [None]
  - DIZZINESS [None]
  - DYSGRAPHIA [None]
  - DYSPHAGIA [None]
  - GAIT DISTURBANCE [None]
  - HAEMOGLOBIN DECREASED [None]
  - HYPOAESTHESIA [None]
  - HYPOREFLEXIA [None]
  - MEDICATION ERROR [None]
  - NAUSEA [None]
  - NEUROGENIC BLADDER [None]
  - OESOPHAGEAL DISORDER [None]
  - ORTHOSTATIC HYPOTENSION [None]
  - OVERDOSE [None]
  - PAIN IN EXTREMITY [None]
  - PARAESTHESIA [None]
  - PERIPHERAL MOTOR NEUROPATHY [None]
  - PERIPHERAL SENSORY NEUROPATHY [None]
  - PERONEAL NERVE INJURY [None]
  - POLLAKIURIA [None]
  - SYNCOPE [None]
  - URINARY RETENTION [None]
  - VOMITING [None]
  - WHEELCHAIR USER [None]
  - WHITE BLOOD CELL COUNT INCREASED [None]
  - WRONG DRUG ADMINISTERED [None]
